FAERS Safety Report 24234329 (Version 2)
Quarter: 2025Q1

REPORT INFORMATION
  Report Type: Spontaneous
  Country: US (occurrence: US)
  Receive Date: 20240821
  Receipt Date: 20250212
  Transmission Date: 20250408
  Serious: No
  Sender: Haleon PLC
  Company Number: US-HALEON-2192960

PATIENT

DRUGS (1)
  1. VOLTAREN ARTHRITIS PAIN [Suspect]
     Active Substance: DICLOFENAC SODIUM
     Indication: Back pain

REACTIONS (5)
  - Nightmare [Unknown]
  - Product use in unapproved indication [Unknown]
  - Insomnia [Unknown]
  - Depression [Unknown]
  - Product administered at inappropriate site [Unknown]
